FAERS Safety Report 5158062-2 (Version None)
Quarter: 2006Q4

REPORT INFORMATION
  Report Type: 
  Country: None (occurrence: None)
  Receive Date: 20061116
  Receipt Date: 20061030
  Transmission Date: 20070319
  Serious: Yes (Other)
  Sender: FDA-Public Use
  Company Number: IND-AE-06-SAN-044

PATIENT
  Sex: Female
  Weight: 115 kg

DRUGS (11)
  1. SANCTURA [Suspect]
     Indication: URINARY INCONTINENCE
     Dosage: 20MG - BID - ORAL
     Route: 048
     Dates: start: 20060717, end: 20060825
  2. ALLOPURINOL [Concomitant]
  3. ARIMIDEX [Concomitant]
  4. BETAHISTINE DIHYDROCHLORIDE [Concomitant]
  5. BISOPROLOL FURMARATE [Concomitant]
  6. BUMETANIDE [Concomitant]
  7. ACETAMINOPHEN W/ CODEINE [Concomitant]
  8. LISINOPRIL [Concomitant]
  9. MIXTARD HUMAN 70/30 [Concomitant]
  10. SIMVASTATIN [Concomitant]
  11. WARFARIN SODIUM [Concomitant]

REACTIONS (1)
  - HYPOGLYCAEMIA [None]
